FAERS Safety Report 17965432 (Version 2)
Quarter: 2020Q4

REPORT INFORMATION
  Report Type: Spontaneous
  Country: GB (occurrence: GB)
  Receive Date: 20200630
  Receipt Date: 20201001
  Transmission Date: 20210113
  Serious: Yes (Life-Threatening, Hospitalization)
  Sender: FDA-Public Use
  Company Number: NVSC2020GB183264

PATIENT
  Age: 37 Year
  Sex: Male

DRUGS (2)
  1. VALPROIC ACID. [Concomitant]
     Active Substance: VALPROIC ACID
     Indication: BIPOLAR DISORDER
     Dosage: 1500 MG, QD (500 MG IN THE MORNING AND 1 G AT NIGHT)
     Route: 048
     Dates: start: 201903
  2. OLANZAPINE. [Suspect]
     Active Substance: OLANZAPINE
     Indication: BIPOLAR DISORDER
     Dosage: 405 MG (INJECTION)
     Route: 030
     Dates: start: 20200512

REACTIONS (8)
  - Gait disturbance [Recovered/Resolved]
  - Post procedural complication [Recovered/Resolved]
  - Respiration abnormal [Recovered/Resolved]
  - Confusional state [Recovered/Resolved]
  - Agitation [Unknown]
  - Coordination abnormal [Recovered/Resolved]
  - Tension [Recovered/Resolved]
  - Dizziness [Recovered/Resolved]

NARRATIVE: CASE EVENT DATE: 20200512
